FAERS Safety Report 8975457 (Version 1)
Quarter: 2012Q4

REPORT INFORMATION
  Report Type: Report from Study
  Country: US (occurrence: US)
  Receive Date: 20121219
  Receipt Date: 20121219
  Transmission Date: 20130627
  Serious: Yes (Hospitalization)
  Sender: FDA-Public Use
  Company Number: US-PURDUE-USA-2012-0096957

PATIENT
  Age: 48 Year
  Sex: Female

DRUGS (3)
  1. BUTRANS [Suspect]
     Indication: PRODUCT USED FOR UNKNOWN INDICATION
     Dosage: 20 mcg, weekly
     Route: 062
  2. BUTRANS [Suspect]
     Dosage: 40 mcg, weekly
     Route: 062
  3. BUTRANS [Suspect]
     Dosage: 20 mcg, weekly
     Route: 062

REACTIONS (3)
  - Basedow^s disease [Recovered/Resolved]
  - Cellulitis orbital [Recovered/Resolved]
  - Incorrect dose administered [Unknown]
